FAERS Safety Report 6868375-1 (Version None)
Quarter: 2010Q3

REPORT INFORMATION
  Report Type: 
  Country: None (occurrence: None)
  Receive Date: 20100722
  Receipt Date: 20080722
  Transmission Date: 20110219
  Serious: No
  Sender: FDA-Public Use
  Company Number: US-PFIZER INC-2008039401

PATIENT
  Sex: Female
  Weight: 44.9 kg

DRUGS (4)
  1. CHANTIX [Suspect]
     Indication: SMOKING CESSATION THERAPY
     Route: 048
     Dates: start: 20080503
  2. ERYTHROMYCIN [Suspect]
  3. RITALIN [Concomitant]
  4. WELLBUTRIN [Concomitant]

REACTIONS (3)
  - FORMICATION [None]
  - HYPERSENSITIVITY [None]
  - PRURITUS [None]
